FAERS Safety Report 16939263 (Version 1)
Quarter: 2019Q4

REPORT INFORMATION
  Report Type: Spontaneous
  Country: US (occurrence: US)
  Receive Date: 20191021
  Receipt Date: 20191021
  Transmission Date: 20200122
  Serious: Yes (Other)
  Sender: FDA-Public Use
  Company Number: US-AMGEN-USASP2019170170

PATIENT
  Age: 63 Year
  Sex: Male

DRUGS (3)
  1. XGEVA [Suspect]
     Active Substance: DENOSUMAB
     Indication: PROPHYLAXIS
     Dosage: UNK, EVERY 12 WEEKS
     Route: 065
  2. ZYTIGA [Concomitant]
     Active Substance: ABIRATERONE ACETATE
     Indication: PROSTATE CANCER
     Dosage: 1000 MILLIGRAM (4X250 MG), QD
     Dates: start: 2019
  3. METHYLPREDNISOLONE. [Concomitant]
     Active Substance: METHYLPREDNISOLONE
     Indication: NEUROPATHY PERIPHERAL
     Dosage: 4 MILLIGRAM, QD
     Dates: start: 2004

REACTIONS (3)
  - Neuropathy peripheral [Unknown]
  - Feeling abnormal [Unknown]
  - Off label use [Unknown]
